FAERS Safety Report 8019381-5 (Version None)
Quarter: 2012Q1

REPORT INFORMATION
  Report Type: 
  Country: None (occurrence: None)
  Receive Date: 20120103
  Receipt Date: 20111221
  Transmission Date: 20120608
  Serious: Yes (Hospitalization, Other)
  Sender: FDA-Public Use
  Company Number: PHHY2011DE099770

PATIENT
  Age: 11 Year
  Sex: Male
  Weight: 45.5 kg

DRUGS (13)
  1. SANDIMMUNE [Suspect]
     Dosage: 120 MG TWICE DAILY
     Route: 048
     Dates: start: 20111116
  2. SANDIMMUNE [Suspect]
     Dosage: 100 MG TWICE DAILY
     Route: 048
     Dates: start: 20111013, end: 20111101
  3. MYCOPHENOLATE MOFETIL (CELLCEPT) [Concomitant]
     Indication: KIDNEY TRANSPLANT REJECTION
     Dosage: 1800 MG, PER DAY
     Route: 048
     Dates: start: 20101227
  4. CORTISONE ACETATE [Concomitant]
     Indication: KIDNEY TRANSPLANT REJECTION
     Route: 048
  5. PREDNISONE [Concomitant]
     Indication: PROPHYLAXIS AGAINST TRANSPLANT REJECTION
     Dosage: 6 MG, PER DAY
     Route: 048
     Dates: start: 20101224
  6. ERGOCALCIFEROL [Concomitant]
     Indication: RENAL FAILURE
     Dosage: 1000 IU
     Route: 048
  7. SANDIMMUNE [Suspect]
     Indication: PROPHYLAXIS AGAINST TRANSPLANT REJECTION
     Dosage: 240 MG, PER DAY
     Route: 048
     Dates: start: 20101231
  8. SANDIMMUNE [Suspect]
     Dosage: 130 MG TWICE DAILY
     Route: 048
     Dates: end: 20111012
  9. AMLODIPINE [Concomitant]
     Indication: HYPERTENSION
     Dosage: 5 MG PER DAY
     Route: 048
     Dates: start: 20101227
  10. KEPPRA [Concomitant]
     Indication: CONVULSION
     Dosage: 1000 MG, PER DAY
     Route: 048
     Dates: start: 20110104
  11. ACETYLSALICYLIC ACID SRT [Concomitant]
     Indication: RENAL TRANSPLANT
     Dosage: 100 MG, PER DAY
     Route: 048
     Dates: start: 20110101
  12. SANDIMMUNE [Suspect]
     Dosage: 110 MG TWICE DAILY
     Route: 048
     Dates: start: 20111102, end: 20111115
  13. RITALIN [Concomitant]
     Indication: ATTENTION DEFICIT/HYPERACTIVITY DISORDER
     Dosage: 20 MG, PER DAY
     Route: 048
     Dates: start: 20110401

REACTIONS (10)
  - VISUAL ACUITY REDUCED [None]
  - PAPILLOEDEMA [None]
  - INTRACRANIAL PRESSURE INCREASED [None]
  - EYE OEDEMA [None]
  - EYE HAEMORRHAGE [None]
  - VISUAL IMPAIRMENT [None]
  - WEIGHT INCREASED [None]
  - BLOOD PRESSURE ABNORMAL [None]
  - BENIGN INTRACRANIAL HYPERTENSION [None]
  - INTRAOCULAR PRESSURE INCREASED [None]
